FAERS Safety Report 9917733 (Version 3)
Quarter: 2015Q3

REPORT INFORMATION
  Report Type: Spontaneous
  Country: US (occurrence: US)
  Receive Date: 20140221
  Receipt Date: 20150817
  Transmission Date: 20151125
  Serious: No
  Sender: FDA-Public Use
  Company Number: US-GILEAD-2014-0094898

PATIENT
  Age: 67 Year
  Sex: Female

DRUGS (2)
  1. LETAIRIS [Suspect]
     Active Substance: AMBRISENTAN
     Indication: SCLERODERMA
  2. LETAIRIS [Suspect]
     Active Substance: AMBRISENTAN
     Indication: PULMONARY HYPERTENSION
     Dosage: 10 MG, QD
     Route: 048
     Dates: start: 20130420

REACTIONS (9)
  - Pruritus [Unknown]
  - Unevaluable event [Unknown]
  - Swelling [Unknown]
  - Blister [Unknown]
  - Rash [Unknown]
  - Presyncope [Unknown]
  - Palpitations [Unknown]
  - Feeling hot [Unknown]
  - Herpes zoster [Unknown]
